FAERS Safety Report 10081984 (Version 2)
Quarter: 2014Q2

REPORT INFORMATION
  Report Type: Spontaneous
  Country: FR (occurrence: FR)
  Receive Date: 20140416
  Receipt Date: 20140416
  Transmission Date: 20141212
  Serious: Yes (Death)
  Sender: FDA-Public Use
  Company Number: FR-CELGENEUS-056-20785-14011927

PATIENT
  Age: 32 Year
  Sex: Female

DRUGS (1)
  1. THALIDOMIDE [Suspect]
     Indication: BEHCET^S SYNDROME
     Route: 048
     Dates: start: 20061218

REACTIONS (1)
  - Road traffic accident [Fatal]
